FAERS Safety Report 14303955 (Version 1)
Quarter: 2017Q4

REPORT INFORMATION
  Report Type: Spontaneous
  Country: FR (occurrence: FR)
  Receive Date: 20171219
  Receipt Date: 20171219
  Transmission Date: 20180321
  Serious: Yes (Other)
  Sender: FDA-Public Use
  Company Number: FR-OTSUKA-DJ20100712

PATIENT
  Sex: Female

DRUGS (1)
  1. ABILIFY [Suspect]
     Active Substance: ARIPIPRAZOLE
     Indication: DEPERSONALISATION/DEREALISATION DISORDER
     Dosage: 10 MG, UNK
     Route: 065
     Dates: start: 20070724, end: 20081124

REACTIONS (6)
  - Premature separation of placenta [Unknown]
  - Influenza [Unknown]
  - Gestational diabetes [Unknown]
  - Product use in unapproved indication [Unknown]
  - Live birth [Unknown]
  - Maternal exposure during pregnancy [Recovered/Resolved]

NARRATIVE: CASE EVENT DATE: 2008
